FAERS Safety Report 4393186-9 (Version None)
Quarter: 2004Q3

REPORT INFORMATION
  Report Type: 
  Country: None (occurrence: None)
  Receive Date: 20040702
  Receipt Date: 20040623
  Transmission Date: 20050211
  Serious: Yes (Other)
  Sender: FDA-Public Use
  Company Number: 2004042678

PATIENT
  Age: 75 Year
  Sex: Female

DRUGS (8)
  1. LIPITOR [Suspect]
     Indication: CORONARY ARTERY SURGERY
     Dosage: ORAL
     Route: 048
  2. ALENDRONATE SODIUM [Concomitant]
  3. LEKOVIT CA (CALCIUM CARBONATE, COLECALCIFEROL) [Concomitant]
  4. NIFEDIPINE [Concomitant]
  5. ASPIRIN [Concomitant]
  6. TEMAZEPAM [Concomitant]
  7. TRIMETHOPRIM [Concomitant]
  8. FUROSEMIDE [Concomitant]

REACTIONS (1)
  - RENAL IMPAIRMENT [None]
